FAERS Safety Report 16859911 (Version 1)
Quarter: 2019Q3

REPORT INFORMATION
  Report Type: Spontaneous
  Country: US (occurrence: US)
  Receive Date: 20190805
  Receipt Date: 20190805
  Transmission Date: 20191005
  Serious: Yes (Other)
  Sender: FDA-Public Use
  Company Number: None

PATIENT
  Age: 43 Year
  Sex: Female

DRUGS (2)
  1. CLINDAMYCIN. [Suspect]
     Active Substance: CLINDAMYCIN
  2. CLINDAMYCIN. [Suspect]
     Active Substance: CLINDAMYCIN

REACTIONS (4)
  - Oral disorder [None]
  - Rash [None]
  - Dermal cyst [None]
  - Pharyngeal swelling [None]

NARRATIVE: CASE EVENT DATE: 20180323
